FAERS Safety Report 25034895 (Version 2)
Quarter: 2025Q3

REPORT INFORMATION
  Report Type: Report from Study
  Country: US (occurrence: US)
  Receive Date: 20250304
  Receipt Date: 20250809
  Transmission Date: 20251020
  Serious: Yes (Other)
  Sender: ALEXION PHARMACEUTICALS
  Company Number: US-AstraZeneca-CH-00818388A

PATIENT
  Age: 61 Year
  Sex: Female

DRUGS (1)
  1. STRENSIQ [Suspect]
     Active Substance: ASFOTASE ALFA
     Indication: Hypophosphatasia

REACTIONS (8)
  - Deafness [Recovered/Resolved]
  - Blood pressure increased [Recovered/Resolved]
  - Influenza [Recovered/Resolved]
  - Ear discomfort [Recovered/Resolved]
  - Middle ear effusion [Recovered/Resolved]
  - Headache [Recovered/Resolved]
  - Anxiety [Recovered/Resolved]
  - Stress [Unknown]

NARRATIVE: CASE EVENT DATE: 20241201
